FAERS Safety Report 11050345 (Version 1)
Quarter: 2015Q2

REPORT INFORMATION
  Report Type: Spontaneous
  Country: US (occurrence: US)
  Receive Date: 20150421
  Receipt Date: 20150421
  Transmission Date: 20150821
  Serious: No
  Sender: FDA-Public Use
  Company Number: US-009507513-1504USA018668

PATIENT
  Age: 31 Year
  Sex: Female

DRUGS (1)
  1. BELSOMRA [Suspect]
     Active Substance: SUVOREXANT
     Indication: INSOMNIA
     Dosage: 10MG/ ONCE DAILY
     Route: 048
     Dates: start: 201503, end: 2015

REACTIONS (1)
  - Feeling drunk [Recovered/Resolved]

NARRATIVE: CASE EVENT DATE: 201503
